FAERS Safety Report 5633648-7 (Version None)
Quarter: 2008Q1

REPORT INFORMATION
  Report Type: 
  Country: None (occurrence: None)
  Receive Date: 20080131
  Receipt Date: 20071203
  Transmission Date: 20080703
  Serious: No
  Sender: FDA-Public Use
  Company Number: 163-21880-07120106

PATIENT
  Age: 78 Year
  Sex: Female
  Weight: 73.0291 kg

DRUGS (12)
  1. REVLIMID [Suspect]
     Indication: MULTIPLE MYELOMA
     Dosage: 15 MG, 1 IN 1 D, ORAL ; 5-10MG, DAILY, ORAL
     Route: 048
     Dates: start: 20060421, end: 20071201
  2. REVLIMID [Suspect]
     Indication: MULTIPLE MYELOMA
     Dosage: 15 MG, 1 IN 1 D, ORAL ; 5-10MG, DAILY, ORAL
     Route: 048
     Dates: start: 20071201
  3. VELCADE [Concomitant]
  4. ZOMETA [Concomitant]
  5. ZOLOFT [Concomitant]
  6. ENDOCET (OXYCOCET) [Concomitant]
  7. LASIX [Concomitant]
  8. FOLIC ACID [Concomitant]
  9. VITAMIN B6 [Concomitant]
  10. ACYCLOVIR [Concomitant]
  11. SOLU-MEDROL [Concomitant]
  12. ASPIRIN [Concomitant]

REACTIONS (2)
  - DISEASE PROGRESSION [None]
  - PROTEIN TOTAL INCREASED [None]
